FAERS Safety Report 25242237 (Version 2)
Quarter: 2025Q3

REPORT INFORMATION
  Report Type: Spontaneous
  Country: US (occurrence: US)
  Receive Date: 20250426
  Receipt Date: 20250809
  Transmission Date: 20251021
  Serious: Yes (Death, Life-Threatening, Other)
  Sender: ALEXION PHARMACEUTICALS
  Company Number: US-ASTRAZENECA-202504GLO016774US

PATIENT
  Age: 76 Year
  Sex: Male

DRUGS (6)
  1. ANDEXXA [Suspect]
     Active Substance: ANDEXANET ALFA
     Indication: Cerebral haemorrhage
     Route: 065
  2. METOPROLOL TARTRATE [Interacting]
     Active Substance: METOPROLOL TARTRATE
     Indication: Atrial fibrillation
     Route: 065
  3. DILTIAZEM [Interacting]
     Active Substance: DILTIAZEM
     Indication: Atrial fibrillation
     Route: 065
  4. IBRUTINIB [Concomitant]
     Active Substance: IBRUTINIB
  5. APIXABAN [Concomitant]
     Active Substance: APIXABAN
  6. AMIODARONE [Concomitant]
     Active Substance: AMIODARONE

REACTIONS (6)
  - Acute myocardial infarction [Unknown]
  - Septic shock [Fatal]
  - Chronic kidney disease [Fatal]
  - Staphylococcal infection [Unknown]
  - Acute respiratory failure [Fatal]
  - Drug interaction [Unknown]
